FAERS Safety Report 11431896 (Version 1)
Quarter: 2015Q3

REPORT INFORMATION
  Report Type: Spontaneous
  Country: US (occurrence: US)
  Receive Date: 20150828
  Receipt Date: 20150828
  Transmission Date: 20151125
  Serious: Yes (Other)
  Sender: FDA-Public Use
  Company Number: US-AMGEN-USASP2015087215

PATIENT
  Age: 64 Year
  Sex: Male

DRUGS (1)
  1. XGEVA [Suspect]
     Active Substance: DENOSUMAB
     Indication: PROSTATE CANCER
     Dosage: UNK
     Route: 065
     Dates: start: 2014

REACTIONS (7)
  - Oral surgery [Unknown]
  - Gingival swelling [Not Recovered/Not Resolved]
  - Pain [Not Recovered/Not Resolved]
  - Gingival injury [Not Recovered/Not Resolved]
  - Osteonecrosis of jaw [Not Recovered/Not Resolved]
  - Discomfort [Not Recovered/Not Resolved]
  - Suture rupture [Not Recovered/Not Resolved]

NARRATIVE: CASE EVENT DATE: 2015
